FAERS Safety Report 8996009 (Version 1)
Quarter: 2013Q1

REPORT INFORMATION
  Report Type: Spontaneous
  Country: US (occurrence: US)
  Receive Date: 20130103
  Receipt Date: 20130103
  Transmission Date: 20140127
  Serious: No
  Sender: FDA-Public Use
  Company Number: US-ABBOTT-12P-163-0934757-00

PATIENT
  Sex: Female
  Weight: 57.66 kg

DRUGS (2)
  1. SYNTHROID [Suspect]
     Indication: HYPOTHYROIDISM
     Dosage: 50MCG 11/4 TABLET TO EQUAL 62.5MG DAILY
     Route: 048
     Dates: start: 1997, end: 201204
  2. SYNTHROID [Suspect]
     Dosage: 11/2 50MCG TABLET DAILY TO EQUAL 75 MCG
     Route: 048
     Dates: start: 201204

REACTIONS (8)
  - Skin disorder [Unknown]
  - Fatigue [Not Recovered/Not Resolved]
  - Blood thyroid stimulating hormone increased [Not Recovered/Not Resolved]
  - Wrong technique in drug usage process [Unknown]
  - Hair disorder [Unknown]
  - Therapeutic response decreased [Unknown]
  - Adverse reaction [Unknown]
  - Adverse reaction [Unknown]
